FAERS Safety Report 11021243 (Version 5)
Quarter: 2016Q4

REPORT INFORMATION
  Report Type: Spontaneous
  Country: US (occurrence: US)
  Receive Date: 20150413
  Receipt Date: 20161110
  Transmission Date: 20170206
  Serious: Yes (Hospitalization, Disabling)
  Sender: FDA-Public Use
  Company Number: US-009507513-1504USA005245

PATIENT
  Sex: Male

DRUGS (2)
  1. PROPECIA [Suspect]
     Active Substance: FINASTERIDE
     Indication: ANDROGENETIC ALOPECIA
     Dosage: 1 MG, UNK
     Route: 048
     Dates: start: 20110106, end: 20110801
  2. FINASTERIDE. [Suspect]
     Active Substance: FINASTERIDE
     Indication: ANDROGENETIC ALOPECIA
     Dosage: 5 MG, UNK
     Route: 048
     Dates: start: 20100525, end: 2011

REACTIONS (16)
  - Blood cholesterol increased [Unknown]
  - Drug administration error [Unknown]
  - Vertigo [Recovering/Resolving]
  - Blood testosterone decreased [Unknown]
  - Anxiety [Not Recovered/Not Resolved]
  - Nasal congestion [Unknown]
  - Erectile dysfunction [Not Recovered/Not Resolved]
  - Sexual dysfunction [Not Recovered/Not Resolved]
  - Flushing [Unknown]
  - Hypogonadism [Unknown]
  - Prostatomegaly [Recovered/Resolved]
  - Dizziness [Unknown]
  - Libido decreased [Unknown]
  - Depression [Not Recovered/Not Resolved]
  - Hair transplant [Unknown]
  - Disturbance in sexual arousal [Unknown]

NARRATIVE: CASE EVENT DATE: 2010
